FAERS Safety Report 13101211 (Version 1)
Quarter: 2017Q1

REPORT INFORMATION
  Report Type: Spontaneous
  Country: CL (occurrence: CL)
  Receive Date: 20170110
  Receipt Date: 20170110
  Transmission Date: 20170428
  Serious: Yes (Other)
  Sender: FDA-Public Use
  Company Number: CL-BAYER-2017-004427

PATIENT
  Sex: Female

DRUGS (1)
  1. AVELOX [Suspect]
     Active Substance: MOXIFLOXACIN HYDROCHLORIDE

REACTIONS (4)
  - Tachycardia [Unknown]
  - Reduced facial expression [Unknown]
  - Tremor [Unknown]
  - Feeling abnormal [Unknown]
